FAERS Safety Report 8001052-2 (Version None)
Quarter: 2011Q4

REPORT INFORMATION
  Report Type: 
  Country: None (occurrence: None)
  Receive Date: 20111222
  Receipt Date: 20110922
  Transmission Date: 20120403
  Serious: No
  Sender: FDA-Public Use
  Company Number: US-GLAXOSMITHKLINE-A0945629A

PATIENT
  Age: 63 Year
  Sex: Female

DRUGS (18)
  1. GLIPIZIDE [Concomitant]
  2. FLUOXETINE HYDROCHLORIDE [Concomitant]
  3. PROVIGIL [Concomitant]
  4. POTASSIUM [Concomitant]
  5. ADVAIR DISKUS 100/50 [Concomitant]
  6. SPIRIVA [Concomitant]
  7. SIMVASTATIN [Concomitant]
  8. DIGOXIN [Concomitant]
  9. ALDACTONE [Concomitant]
  10. DEXLANSOPRAZOLE [Concomitant]
  11. ASPIRIN [Concomitant]
  12. COREG [Concomitant]
  13. IBUPROFEN [Concomitant]
  14. LISINOPRIL [Concomitant]
  15. XANAX [Concomitant]
  16. FLUTICASONE PROPIONATE [Suspect]
     Indication: MULTIPLE ALLERGIES
     Dosage: 4SPR PER DAY
     Route: 045
     Dates: start: 20110701, end: 20110901
  17. METFORMIN HCL [Concomitant]
  18. LASIX [Concomitant]

REACTIONS (2)
  - EPISTAXIS [None]
  - HEADACHE [None]
